FAERS Safety Report 8506820 (Version 2)
Quarter: 2012Q4

REPORT INFORMATION
  Report Type: 
  Country: US (occurrence: US)
  Receive Date: 20120412
  Receipt Date: 20121120
  Transmission Date: 20130627
  Serious: No
  Sender: FDA-Public Use
  Company Number: US-ASTRAZENECA-2011SE73386

PATIENT
  Age: 63 Year
  Sex: Female

DRUGS (2)
  1. NEXIUM [Suspect]
     Route: 048
     Dates: start: 2007
  2. OMEPRAZOLE [Suspect]
     Route: 048

REACTIONS (7)
  - Feeling abnormal [Unknown]
  - Adverse event [Unknown]
  - Stress [Unknown]
  - Pain [Unknown]
  - Adverse drug reaction [Unknown]
  - Dyspepsia [Unknown]
  - Intentional drug misuse [Unknown]
